FAERS Safety Report 6722386-5 (Version None)
Quarter: 2010Q2

REPORT INFORMATION
  Report Type: 
  Country: None (occurrence: None)
  Receive Date: 20100512
  Receipt Date: 20100423
  Transmission Date: 20101027
  Serious: Yes (Hospitalization)
  Sender: FDA-Public Use
  Company Number: SI-MEDIMMUNE-MEDI-0011172

PATIENT
  Age: 25 Week
  Sex: Male

DRUGS (1)
  1. SYNAGIS [Suspect]
     Route: 030
     Dates: start: 20100101, end: 20100302

REACTIONS (6)
  - CEREBRAL CYST [None]
  - CEREBRAL VENOUS THROMBOSIS [None]
  - CONVULSION [None]
  - IRRITABILITY [None]
  - MUSCLE SPASMS [None]
  - TACHYPNOEA [None]
